FAERS Safety Report 4505615-8 (Version None)
Quarter: 2004Q4

REPORT INFORMATION
  Report Type: 
  Country: None (occurrence: None)
  Receive Date: 20041025
  Receipt Date: 20040816
  Transmission Date: 20050328
  Serious: Yes (Other)
  Sender: FDA-Public Use
  Company Number: US-JNJFOC-20031005007

PATIENT
  Age: 54 Year
  Sex: Female
  Weight: 81.1939 kg

DRUGS (17)
  1. REMICADE [Suspect]
     Indication: PSORIATIC ARTHROPATHY
     Dosage: INTRAVENOUS
     Route: 042
     Dates: start: 20020101
  2. LOREZEPAM (LORAZEPAM) [Concomitant]
  3. PLAQUENIL [Concomitant]
  4. AZULFADINE (SULFASALAZINE) [Concomitant]
  5. METHOTREXATE SODIUM [Concomitant]
  6. INDOCIN [Concomitant]
  7. BUSPAR [Concomitant]
  8. PAXIL [Concomitant]
  9. TRAZADONE (TRAZODONE) [Concomitant]
  10. NEURONTIN [Concomitant]
  11. CELEBREX [Concomitant]
  12. EVISTA [Concomitant]
  13. DETROL [Concomitant]
  14. IMPRAMINE (IMIPRAMINE) [Concomitant]
  15. LOTREL (LOTREL) [Concomitant]
  16. PERCOCET [Concomitant]
  17. . [Concomitant]

REACTIONS (1)
  - SKIN ULCER [None]
